FAERS Safety Report 16131989 (Version 1)
Quarter: 2019Q2

REPORT INFORMATION
  Report Type: Spontaneous
  Country: US (occurrence: US)
  Receive Date: 20190328
  Receipt Date: 20190328
  Transmission Date: 20190711
  Serious: Yes (Other)
  Sender: FDA-Public Use
  Company Number: None

PATIENT
  Age: 79 Year
  Weight: 83.43 kg

DRUGS (8)
  1. VANCOMYCIN + SYRSPEND [Concomitant]
  2. TRAMADOL. [Concomitant]
     Active Substance: TRAMADOL
  3. TAMSULOSIN [Concomitant]
     Active Substance: TAMSULOSIN
  4. MAGNESIUM [Concomitant]
     Active Substance: MAGNESIUM
  5. FENTANYL. [Concomitant]
     Active Substance: FENTANYL
  6. MELPHALAN. [Suspect]
     Active Substance: MELPHALAN
     Indication: PLASMA CELL MYELOMA
     Route: 048
     Dates: start: 20181211
  7. SODIUM BICARBONATE. [Concomitant]
     Active Substance: SODIUM BICARBONATE
  8. POMALYST [Concomitant]
     Active Substance: POMALIDOMIDE

REACTIONS (2)
  - Renal failure [None]
  - Thrombocytopenia [None]
